FAERS Safety Report 19497570 (Version 2)
Quarter: 2021Q3

REPORT INFORMATION
  Report Type: Report from Study
  Country: US (occurrence: US)
  Receive Date: 20210706
  Receipt Date: 20210827
  Transmission Date: 20211014
  Serious: Yes (Hospitalization, Other)
  Sender: FDA-Public Use
  Company Number: US-ANTARES PHARMA, INC.-2021-POS-MX-0975

PATIENT

DRUGS (7)
  1. HUMIRA [Suspect]
     Active Substance: ADALIMUMAB
     Dosage: 80 MG (TITER), Q24H
     Route: 058
     Dates: start: 20200505, end: 20200505
  2. HUMIRA [Suspect]
     Active Substance: ADALIMUMAB
     Dosage: 40 MG (TITER), QWK
     Route: 058
     Dates: start: 202005, end: 202008
  3. COVID?19 VACCINE NOS. [Suspect]
     Active Substance: COVID-19 VACCINE NOS
     Indication: COVID-19 IMMUNISATION
     Dosage: UNK, ONCE
     Route: 030
     Dates: start: 20210503, end: 20210503
  4. OTREXUP [Suspect]
     Active Substance: METHOTREXATE
     Indication: PRODUCT USED FOR UNKNOWN INDICATION
     Dosage: UNK, UNKNOWN
     Route: 065
  5. HUMIRA [Suspect]
     Active Substance: ADALIMUMAB
     Indication: CROHN^S DISEASE
     Dosage: 160 MG (TITER), Q24H
     Route: 058
     Dates: start: 20200317, end: 20200421
  6. ELIQUIS [Concomitant]
     Active Substance: APIXABAN
     Indication: PRODUCT USED FOR UNKNOWN INDICATION
     Dosage: UNK UNK, UNKNOWN
     Route: 065
     Dates: start: 2020
  7. HUMIRA [Suspect]
     Active Substance: ADALIMUMAB
     Dosage: 40 MG (TITER), Q2WEEKS
     Route: 058
     Dates: start: 2020

REACTIONS (29)
  - Asthenia [Unknown]
  - Genital herpes [Not Recovered/Not Resolved]
  - Pyrexia [Recovered/Resolved]
  - Palpitations [Unknown]
  - Chills [Not Recovered/Not Resolved]
  - Rectal discharge [Not Recovered/Not Resolved]
  - Decreased appetite [Not Recovered/Not Resolved]
  - Weight decreased [Not Recovered/Not Resolved]
  - Fatigue [Not Recovered/Not Resolved]
  - Headache [Not Recovered/Not Resolved]
  - Feeling cold [Not Recovered/Not Resolved]
  - Malaise [Not Recovered/Not Resolved]
  - Arthralgia [Unknown]
  - Nausea [Unknown]
  - Vomiting [Recovered/Resolved]
  - Pulmonary embolism [Unknown]
  - Abdominal distension [Unknown]
  - Proctalgia [Not Recovered/Not Resolved]
  - Hypotension [Unknown]
  - Cold sweat [Not Recovered/Not Resolved]
  - Rectal haemorrhage [Recovering/Resolving]
  - Abdominal pain upper [Recovered/Resolved]
  - Diarrhoea [Unknown]
  - Pain [Not Recovered/Not Resolved]
  - Migraine [Recovered/Resolved]
  - Injection site pain [Unknown]
  - Abdominal pain upper [Not Recovered/Not Resolved]
  - Haemorrhage [Unknown]
  - Headache [Recovered/Resolved]

NARRATIVE: CASE EVENT DATE: 2020
